FAERS Safety Report 20653740 (Version 1)
Quarter: 2022Q1

REPORT INFORMATION
  Report Type: Spontaneous
  Country: US (occurrence: US)
  Receive Date: 20220330
  Receipt Date: 20220330
  Transmission Date: 20220424
  Serious: No
  Sender: FDA-Public Use
  Company Number: US-PFIZER INC-202101883189

PATIENT
  Age: 63 Year
  Sex: Female

DRUGS (14)
  1. IBRANCE [Suspect]
     Active Substance: PALBOCICLIB
     Indication: Breast cancer female
     Dosage: 125 MG, CYCLIC (21 DAYS ON, 7 DAYS OFF)
     Route: 048
     Dates: start: 20211103
  2. LETROZOLE [Suspect]
     Active Substance: LETROZOLE
  3. CALCIUM [Concomitant]
     Active Substance: CALCIUM
  4. ELIQUIS [Concomitant]
     Active Substance: APIXABAN
  5. ESOMEPRAZOLE [Concomitant]
     Active Substance: ESOMEPRAZOLE
  6. LISINOPRIL [Concomitant]
     Active Substance: LISINOPRIL
  7. HYDROCHLOROTHIAZIDE [Concomitant]
     Active Substance: HYDROCHLOROTHIAZIDE
  8. METFORMIN [Concomitant]
     Active Substance: METFORMIN HYDROCHLORIDE
  9. METOPROLOL [Concomitant]
     Active Substance: METOPROLOL
  10. MODERNA COVID-19 VACCINE [Concomitant]
     Active Substance: ELASOMERAN
  11. NAPROXEN [Concomitant]
     Active Substance: NAPROXEN
  12. SOTALOL [Concomitant]
     Active Substance: SOTALOL
  13. TAMSULOSIN [Concomitant]
     Active Substance: TAMSULOSIN
  14. ZETIA [Concomitant]
     Active Substance: EZETIMIBE

REACTIONS (2)
  - Abdominal discomfort [Not Recovered/Not Resolved]
  - Diarrhoea [Not Recovered/Not Resolved]

NARRATIVE: CASE EVENT DATE: 20210101
